FAERS Safety Report 23109962 (Version 1)
Quarter: 2023Q4

REPORT INFORMATION
  Report Type: Spontaneous
  Country: US (occurrence: US)
  Receive Date: 20231026
  Receipt Date: 20231026
  Transmission Date: 20240110
  Serious: No
  Sender: FDA-Public Use
  Company Number: US-BRISTOL-MYERS SQUIBB COMPANY-2023-151044

PATIENT
  Age: 70 Year
  Sex: Female
  Weight: 130 kg

DRUGS (1)
  1. ORENCIA [Suspect]
     Active Substance: ABATACEPT
     Indication: Product used for unknown indication
     Dosage: 1000 MG; FREQ : DAY 1, DAY 8, DAY 15 EVERY 28 DAYS
     Route: 042

REACTIONS (1)
  - Wound [Unknown]

NARRATIVE: CASE EVENT DATE: 20230401
